FAERS Safety Report 25761620 (Version 3)
Quarter: 2025Q4

REPORT INFORMATION
  Report Type: Spontaneous
  Country: US (occurrence: US)
  Receive Date: 20250904
  Receipt Date: 20251006
  Transmission Date: 20260119
  Serious: No
  Sender: PFIZER
  Company Number: US-PFIZER INC-202500171480

PATIENT
  Age: 8 Year
  Sex: Male
  Weight: 29.478 kg

DRUGS (1)
  1. GENOTROPIN [Suspect]
     Active Substance: SOMATROPIN
     Indication: Growth hormone deficiency
     Dosage: 1.2 MG, DAILY, NIGHTLY
     Dates: start: 202307

REACTIONS (1)
  - Device issue [Unknown]
